FAERS Safety Report 20091393 (Version 1)
Quarter: 2021Q4

REPORT INFORMATION
  Report Type: Report from Study
  Country: CO (occurrence: CO)
  Receive Date: 20211119
  Receipt Date: 20211119
  Transmission Date: 20220303
  Serious: Yes (Hospitalization)
  Sender: FDA-Public Use
  Company Number: CO-ABBVIE-21K-036-4168203-00

PATIENT
  Age: 29 Year
  Sex: Male
  Weight: 52 kg

DRUGS (2)
  1. ZEMPLAR [Suspect]
     Active Substance: PARICALCITOL
     Indication: Hyperparathyroidism secondary
     Route: 042
  2. ZEMPLAR [Suspect]
     Active Substance: PARICALCITOL
     Indication: Chronic kidney disease
     Route: 042
     Dates: start: 20210602

REACTIONS (2)
  - Catheter placement [Recovering/Resolving]
  - Device related bacteraemia [Recovering/Resolving]

NARRATIVE: CASE EVENT DATE: 20211001
